FAERS Safety Report 8266924-2 (Version None)
Quarter: 2012Q2

REPORT INFORMATION
  Report Type: 
  Country: None (occurrence: None)
  Receive Date: 20120404
  Receipt Date: 20120404
  Transmission Date: 20120825
  Serious: Yes (Life-Threatening)
  Sender: FDA-Public Use
  Company Number: None

PATIENT
  Age: 55 Year
  Sex: Male
  Weight: 75 kg

DRUGS (1)
  1. MORPHINE [Suspect]
     Indication: PAIN
     Dosage: 30 MG OTHER PO
     Route: 048
     Dates: start: 20120201, end: 20120204

REACTIONS (13)
  - BACK PAIN [None]
  - SOMNOLENCE [None]
  - SEDATION [None]
  - HEART RATE INCREASED [None]
  - DISORIENTATION [None]
  - MENTAL STATUS CHANGES [None]
  - DELIRIUM [None]
  - UNRESPONSIVE TO STIMULI [None]
  - RESPIRATORY RATE DECREASED [None]
  - NAUSEA [None]
  - NECK PAIN [None]
  - FEELING COLD [None]
  - ENCEPHALOPATHY [None]
